FAERS Safety Report 20508897 (Version 1)
Quarter: 2022Q1

REPORT INFORMATION
  Report Type: Spontaneous
  Country: SE (occurrence: SE)
  Receive Date: 20220223
  Receipt Date: 20220223
  Transmission Date: 20220423
  Serious: Yes (Disabling)
  Sender: FDA-Public Use
  Company Number: None

PATIENT
  Age: 56 Year
  Sex: Female

DRUGS (4)
  1. ACETAMINOPHEN [Suspect]
     Active Substance: ACETAMINOPHEN
     Indication: Product used for unknown indication
     Dosage: 500 MG 2 VB.
     Route: 048
  2. METHOTREXATE ORION [METHOTREXATE] [Concomitant]
     Route: 048
  3. FOLIC ACID [Concomitant]
     Active Substance: FOLIC ACID
     Route: 048
  4. OLUMIANT [Suspect]
     Active Substance: BARICITINIB
     Indication: Rheumatoid arthritis
     Dosage: 4 MG, QD
     Route: 048
     Dates: start: 20190613, end: 20200901

REACTIONS (1)
  - Abscess jaw [Recovered/Resolved with Sequelae]

NARRATIVE: CASE EVENT DATE: 20200901
